FAERS Safety Report 9199577 (Version 1)
Quarter: 2013Q1

REPORT INFORMATION
  Report Type: Spontaneous
  Country: US (occurrence: US)
  Receive Date: 20130329
  Receipt Date: 20130329
  Transmission Date: 20140127
  Serious: No
  Sender: FDA-Public Use
  Company Number: US-GLAXOSMITHKLINE-A1007331A

PATIENT
  Age: 31 Year
  Sex: Female

DRUGS (3)
  1. BENLYSTA [Suspect]
     Indication: SYSTEMIC LUPUS ERYTHEMATOSUS
     Route: 042
     Dates: start: 20121221
  2. BENADRYL [Concomitant]
  3. SOLUMEDROL [Concomitant]

REACTIONS (4)
  - Thrombosis [Recovered/Resolved]
  - Infusion site pain [Recovered/Resolved]
  - Pain in extremity [Recovered/Resolved]
  - Thrombophlebitis superficial [Recovered/Resolved]
